FAERS Safety Report 5451950-9 (Version None)
Quarter: 2007Q3

REPORT INFORMATION
  Report Type: 
  Country: None (occurrence: None)
  Receive Date: 20070912
  Receipt Date: 20070906
  Transmission Date: 20080115
  Serious: Yes (Hospitalization)
  Sender: FDA-Public Use
  Company Number: GRT 2007-12860

PATIENT
  Age: 68 Year
  Sex: Male
  Weight: 91 kg

DRUGS (8)
  1. LIDOCAINE [Suspect]
     Indication: POST HERPETIC NEURALGIA
     Dosage: 1 PATCH A DAY
     Dates: start: 20070524
  2. PREGABALIN [Suspect]
     Indication: POST HERPETIC NEURALGIA
     Dosage: TWICE A DAY
     Dates: start: 20070420, end: 20070524
  3. DICLOFENAC [Concomitant]
  4. ASPIRIN [Concomitant]
  5. GAVISCON [Concomitant]
  6. OXYGEN [Concomitant]
  7. SEREVENT [Concomitant]
  8. MODALIN [Concomitant]

REACTIONS (2)
  - APPENDICITIS [None]
  - DYSPNOEA [None]
